FAERS Safety Report 7481935-2 (Version None)
Quarter: 2011Q2

REPORT INFORMATION
  Report Type: 
  Country: None (occurrence: None)
  Receive Date: 20110509
  Receipt Date: 20110426
  Transmission Date: 20111010
  Serious: Yes (Hospitalization)
  Sender: FDA-Public Use
  Company Number: 2011US0113

PATIENT
  Age: 8 Year
  Sex: Female

DRUGS (2)
  1. ORFADIN [Suspect]
     Indication: OFF LABEL USE
     Dosage: 20 MG, 2 IN 1 D
     Dates: start: 20091028, end: 20101027
  2. ORFADIN [Suspect]
     Indication: PHENYLKETONURIA
     Dosage: 20 MG, 2 IN 1 D
     Dates: start: 20091028, end: 20101027

REACTIONS (2)
  - LIVER TRANSPLANT [None]
  - OFF LABEL USE [None]
